FAERS Safety Report 22009720 (Version 1)
Quarter: 2023Q1

REPORT INFORMATION
  Report Type: Spontaneous
  Country: CA (occurrence: CA)
  Receive Date: 20230220
  Receipt Date: 20230220
  Transmission Date: 20230418
  Serious: Yes (Other)
  Sender: FDA-Public Use
  Company Number: CA-BAXTER-2023BAX013197

PATIENT
  Age: 8 Decade
  Sex: Male

DRUGS (6)
  1. DOXORUBICIN [Suspect]
     Active Substance: DOXORUBICIN
     Indication: Solitary fibrous tumour
     Dosage: DOSAGE FORM: NOT SPECIFIED
     Route: 065
  2. DOXORUBICIN [Suspect]
     Active Substance: DOXORUBICIN
     Indication: Metastases to pleura
  3. DACARBAZINE [Suspect]
     Active Substance: DACARBAZINE
     Indication: Solitary fibrous tumour
     Dosage: UNK
     Route: 065
  4. DACARBAZINE [Suspect]
     Active Substance: DACARBAZINE
     Indication: Metastases to pleura
  5. SUNITINIB [Suspect]
     Active Substance: SUNITINIB
     Indication: Solitary fibrous tumour
     Dosage: UNK
     Route: 065
  6. SUNITINIB [Suspect]
     Active Substance: SUNITINIB
     Indication: Metastases to pleura

REACTIONS (1)
  - Drug ineffective [Unknown]
